FAERS Safety Report 5513922-5 (Version None)
Quarter: 2007Q4

REPORT INFORMATION
  Report Type: 
  Country: None (occurrence: None)
  Receive Date: 20071105
  Receipt Date: 20070731
  Transmission Date: 20080405
  Serious: Yes (Hospitalization)
  Sender: FDA-Public Use
  Company Number: SPV1-2007-03964

PATIENT
  Age: 67 Year
  Sex: Male

DRUGS (6)
  1. MIDODRINE HYDROCHLORIDE [Suspect]
     Indication: ORTHOSTATIC HYPOTENSION
     Dosage: 10 MG (2.5 MG,4 IN 1 DAY)
     Dates: start: 19930729, end: 20070101
  2. FLUDROCORTISONE ACETATE [Concomitant]
  3. DIGOXIN [Concomitant]
  4. POTASSIUM CHLORIDE [Concomitant]
  5. FLUINDIONE                  (FLUINDIONE) [Concomitant]
  6. RILMENIDINE                 (RILMENIDINE) [Concomitant]

REACTIONS (1)
  - URINARY RETENTION [None]
